FAERS Safety Report 5444699-X (Version None)
Quarter: 2007Q3

REPORT INFORMATION
  Report Type: 
  Country: None (occurrence: None)
  Receive Date: 20070906
  Receipt Date: 20070424
  Transmission Date: 20080115
  Serious: Yes (Other)
  Sender: FDA-Public Use
  Company Number: A0638172A

PATIENT
  Age: 33 Year
  Sex: Male
  Weight: 116.8 kg

DRUGS (4)
  1. REQUIP [Suspect]
     Indication: RESTLESS LEGS SYNDROME
     Dosage: .5MG AT NIGHT
     Route: 048
     Dates: start: 20060824, end: 20060828
  2. WELLBUTRIN [Concomitant]
     Indication: DRUG USE FOR UNKNOWN INDICATION
     Route: 048
     Dates: start: 20060822
  3. NAPROSYN [Concomitant]
  4. VICODIN [Concomitant]

REACTIONS (10)
  - ANXIETY [None]
  - APHASIA [None]
  - DIZZINESS [None]
  - FEELING JITTERY [None]
  - HYPERHIDROSIS [None]
  - MUSCLE TWITCHING [None]
  - MYOCLONUS [None]
  - SOMNOLENCE [None]
  - SUFFOCATION FEELING [None]
  - TREMOR [None]
